APPROVED DRUG PRODUCT: DICLOFENAC SODIUM
Active Ingredient: DICLOFENAC SODIUM
Strength: 3%
Dosage Form/Route: GEL;TOPICAL
Application: A212351 | Product #001 | TE Code: BX
Applicant: ALEMBIC PHARMACEUTICALS LTD
Approved: Jul 27, 2022 | RLD: No | RS: No | Type: RX